FAERS Safety Report 5685011-0 (Version None)
Quarter: 2008Q1

REPORT INFORMATION
  Report Type: 
  Country: None (occurrence: None)
  Receive Date: 20080328
  Receipt Date: 19970626
  Transmission Date: 20080703
  Serious: Yes (Death, Hospitalization, Other)
  Sender: FDA-Public Use
  Company Number: FR-ROCHE-83124

PATIENT
  Age: 76 Year
  Sex: Female

DRUGS (1)
  1. TICLOPIDINE HCL [Suspect]
     Indication: ANGIOPLASTY
     Route: 048
     Dates: start: 19970513

REACTIONS (5)
  - ANAEMIA [None]
  - ASTHENIA [None]
  - BONE MARROW FAILURE [None]
  - DEATH [None]
  - NEUTROPENIA [None]
